APPROVED DRUG PRODUCT: CLOCORTOLONE PIVALATE
Active Ingredient: CLOCORTOLONE PIVALATE
Strength: 0.1%
Dosage Form/Route: CREAM;TOPICAL
Application: A206370 | Product #001 | TE Code: AB
Applicant: TARO PHARMACEUTICAL INDUSTRIES LTD
Approved: Apr 21, 2020 | RLD: No | RS: No | Type: RX